FAERS Safety Report 19854331 (Version 1)
Quarter: 2021Q3

REPORT INFORMATION
  Report Type: Spontaneous
  Country: US (occurrence: US)
  Receive Date: 20210920
  Receipt Date: 20210920
  Transmission Date: 20211014
  Serious: No
  Sender: FDA-Public Use
  Company Number: US-VISTA PHARMACEUTICALS INC.-2118542

PATIENT
  Age: 54 Year
  Sex: Female
  Weight: 98.18 kg

DRUGS (1)
  1. SULFAMETHOXAZOLE AND TRIMETHOPRIM [Suspect]
     Active Substance: SULFAMETHOXAZOLE\TRIMETHOPRIM
     Indication: SUBCUTANEOUS ABSCESS
     Route: 048
     Dates: start: 20210819, end: 20210823

REACTIONS (8)
  - Chest pain [Unknown]
  - Heart rate increased [Unknown]
  - Peripheral coldness [Unknown]
  - Dizziness [Unknown]
  - Cold sweat [Unknown]
  - Sleep disorder [Unknown]
  - Abdominal pain [Unknown]
  - Pyrexia [Unknown]

NARRATIVE: CASE EVENT DATE: 20210823
